FAERS Safety Report 6191359-6 (Version None)
Quarter: 2009Q2

REPORT INFORMATION
  Report Type: 
  Country: None (occurrence: None)
  Receive Date: 20090515
  Receipt Date: 20090504
  Transmission Date: 20091009
  Serious: Yes (Other)
  Sender: FDA-Public Use
  Company Number: GB-NOVOPROD-286892

PATIENT
  Sex: Female

DRUGS (3)
  1. NOVORAPID [Suspect]
     Indication: INSULIN-REQUIRING TYPE 2 DIABETES MELLITUS
     Dosage: 22 IU, QD (10+6+6)
     Route: 058
  2. NOVORAPID [Suspect]
     Dosage: 18 IU, QD
     Route: 058
  3. LANTUS [Suspect]
     Indication: INSULIN-REQUIRING TYPE 2 DIABETES MELLITUS
     Dosage: 10 IU, QD
     Route: 058

REACTIONS (2)
  - DIARRHOEA [None]
  - PANCREATIC CARCINOMA [None]
